FAERS Safety Report 20018415 (Version 7)
Quarter: 2023Q1

REPORT INFORMATION
  Report Type: Other
  Country: CA (occurrence: None)
  Receive Date: 20211101
  Receipt Date: 20230224
  Transmission Date: 20230418
  Serious: Yes (Hospitalization)
  Sender: FDA-Public Use
  Company Number: CA-ROCHE-2941237

PATIENT
  Age: 42 Year
  Sex: Female

DRUGS (6)
  1. OCREVUS [Suspect]
     Active Substance: OCRELIZUMAB
     Indication: Relapsing-remitting multiple sclerosis
     Dosage: 300 MG AT DAY 0 AND 14, THEN 600 MG EVERY 6 MONTH
     Route: 042
     Dates: start: 20171130
  2. NYSTATIN [Concomitant]
     Active Substance: NYSTATIN
  3. LEVAQUIN [Concomitant]
     Active Substance: LEVOFLOXACIN
  4. POTASSIUM [Concomitant]
     Active Substance: POTASSIUM
  5. SYMBICORT [Concomitant]
     Active Substance: BUDESONIDE\FORMOTEROL FUMARATE DIHYDRATE
  6. FLONASE [Concomitant]
     Active Substance: FLUTICASONE PROPIONATE

REACTIONS (7)
  - Pneumonia [Recovered/Resolved]
  - Vaginal infection [Recovering/Resolving]
  - Oral candidiasis [Not Recovered/Not Resolved]
  - Fatigue [Unknown]
  - Bronchitis [Recovered/Resolved]
  - SARS-CoV-2 test positive [Unknown]
  - Dysarthria [Unknown]

NARRATIVE: CASE EVENT DATE: 20210922
